FAERS Safety Report 25159693 (Version 1)
Quarter: 2025Q2

REPORT INFORMATION
  Report Type: Spontaneous
  Country: JP (occurrence: JP)
  Receive Date: 20250404
  Receipt Date: 20250404
  Transmission Date: 20250716
  Serious: Yes (Hospitalization, Other)
  Sender: ASTELLAS
  Company Number: JP-ASTELLAS-2025-AER-001408

PATIENT
  Age: 9 Decade
  Sex: Female

DRUGS (2)
  1. VYLOY [Suspect]
     Active Substance: ZOLBETUXIMAB-CLZB
     Indication: Gastric cancer stage IV
     Dosage: DOSE LESS THAN 800 MG/M2
     Route: 042
     Dates: start: 20241216
  2. VYLOY [Suspect]
     Active Substance: ZOLBETUXIMAB-CLZB
     Dosage: DOSE LESS THAN 400 MG/M2
     Route: 042
     Dates: start: 20250107

REACTIONS (6)
  - Femur fracture [Recovering/Resolving]
  - Fall [Unknown]
  - Underdose [Unknown]
  - Off label use [Unknown]
  - Underdose [Unknown]
  - Off label use [Unknown]

NARRATIVE: CASE EVENT DATE: 20241216
